FAERS Safety Report 11442133 (Version 1)
Quarter: 2015Q3

REPORT INFORMATION
  Report Type: Spontaneous
  Country: US (occurrence: US)
  Receive Date: 20150901
  Receipt Date: 20150901
  Transmission Date: 20151125
  Serious: Yes (Other)
  Sender: FDA-Public Use
  Company Number: US-JNJFOC-20150819697

PATIENT
  Sex: Male
  Weight: 72.58 kg

DRUGS (4)
  1. REMICADE [Suspect]
     Active Substance: INFLIXIMAB
     Indication: COLITIS ULCERATIVE
     Route: 042
     Dates: start: 2006
  2. REMICADE [Suspect]
     Active Substance: INFLIXIMAB
     Indication: RHEUMATOID ARTHRITIS
     Route: 042
     Dates: start: 2006
  3. SULFASALAZINE. [Concomitant]
     Active Substance: SULFASALAZINE
     Indication: RHEUMATOID ARTHRITIS
     Route: 065
  4. NAPROXEN. [Concomitant]
     Active Substance: NAPROXEN
     Indication: RHEUMATOID ARTHRITIS
     Route: 065

REACTIONS (5)
  - Mycobacterium marinum infection [Recovered/Resolved]
  - Intestinal obstruction [Recovered/Resolved]
  - Pyoderma gangrenosum [Recovered/Resolved]
  - Colitis ulcerative [Recovered/Resolved]
  - Gastrointestinal vascular malformation [Recovered/Resolved]

NARRATIVE: CASE EVENT DATE: 2007
